FAERS Safety Report 11413922 (Version 1)
Quarter: 2015Q3

REPORT INFORMATION
  Report Type: Report from Study
  Country: BR (occurrence: BR)
  Receive Date: 20150824
  Receipt Date: 20150824
  Transmission Date: 20151125
  Serious: Yes (Hospitalization, Other)
  Sender: FDA-Public Use
  Company Number: BR-GLAXOSMITHKLINE-BR2015GSK117536

PATIENT
  Sex: Female

DRUGS (8)
  1. SALBUTAMOL SULPHATE [Suspect]
     Active Substance: ALBUTEROL SULFATE
     Indication: BRONCHOPULMONARY DYSPLASIA
     Dosage: 1 PUFF(S), BID
  2. RANITIDINE HYDROCHLORIDE. [Concomitant]
     Active Substance: RANITIDINE HYDROCHLORIDE
     Indication: REFLUX LARYNGITIS
     Dosage: UNK
     Route: 048
  3. MOTILIUM DOMPERIDONE [Concomitant]
     Indication: REFLUX LARYNGITIS
     Dosage: UNK
     Route: 048
  4. FLUTICASONE PROPIONATE+SALMETEROL XINAFOATE [Suspect]
     Active Substance: FLUTICASONE PROPIONATE\SALMETEROL XINAFOATE
     Indication: BRONCHOPULMONARY DYSPLASIA
     Dosage: 1 PUFF(S), BID
     Route: 055
  5. FLUTICASONE PROPIONATE. [Suspect]
     Active Substance: FLUTICASONE PROPIONATE
     Indication: BRONCHOPULMONARY DYSPLASIA
     Dosage: 1 PUFF(S), BID
     Route: 055
  6. SILDENAFIL. [Concomitant]
     Active Substance: SILDENAFIL
     Indication: LUNG DISORDER
     Dosage: 1 ML, TID
     Route: 048
  7. SPIRONOLACTONE. [Concomitant]
     Active Substance: SPIRONOLACTONE
     Indication: LUNG DISORDER
     Dosage: 1.5 ML, BID
     Route: 048
  8. AZITHROMYCIN [Concomitant]
     Active Substance: AZITHROMYCIN ANHYDROUS
     Indication: PRODUCT USED FOR UNKNOWN INDICATION
     Dosage: 0.6 ML, UNK
     Route: 048

REACTIONS (6)
  - Respiratory disorder [Not Recovered/Not Resolved]
  - Fatigue [Not Recovered/Not Resolved]
  - Pneumonia [Recovered/Resolved]
  - Drug administered to patient of inappropriate age [Not Recovered/Not Resolved]
  - Drug ineffective [Not Recovered/Not Resolved]
  - Device ineffective [Not Recovered/Not Resolved]
